FAERS Safety Report 8391798-9 (Version None)
Quarter: 2012Q2

REPORT INFORMATION
  Report Type: 
  Country: None (occurrence: None)
  Receive Date: 20120529
  Receipt Date: 20120521
  Transmission Date: 20120825
  Serious: Yes (Congenital Anomaly)
  Sender: FDA-Public Use
  Company Number: US-GLAXOSMITHKLINE-A0680960A

PATIENT
  Sex: Female

DRUGS (4)
  1. ZYRTEC [Concomitant]
  2. VITAMIN AND MINERAL PRENATAL SUPPLEMENT W/ FOLIC ACID CAP [Concomitant]
  3. PAXIL [Suspect]
     Indication: DEPRESSION
     Dosage: 20MG PER DAY
     Route: 064
     Dates: start: 20020327
  4. ZOFRAN [Concomitant]

REACTIONS (4)
  - WOLFF-PARKINSON-WHITE SYNDROME [None]
  - PATENT DUCTUS ARTERIOSUS [None]
  - FOETAL EXPOSURE DURING PREGNANCY [None]
  - SUPRAVENTRICULAR TACHYCARDIA [None]
